FAERS Safety Report 7956681-9 (Version None)
Quarter: 2011Q4

REPORT INFORMATION
  Report Type: 
  Country: None (occurrence: None)
  Receive Date: 20111205
  Receipt Date: 20111125
  Transmission Date: 20120403
  Serious: Yes (Disabling)
  Sender: FDA-Public Use
  Company Number: ES-ABBOTT-11P-144-0878651-00

PATIENT
  Age: 42 Year
  Sex: Female

DRUGS (3)
  1. DEPAKENE [Suspect]
     Indication: DEPRESSION
     Route: 048
  2. DOXORUBICIN HYDROCHLORIDE [Concomitant]
     Indication: PRODUCT USED FOR UNKNOWN INDICATION
  3. TRABECTEDIN [Concomitant]
     Indication: PRODUCT USED FOR UNKNOWN INDICATION

REACTIONS (4)
  - INTERMITTENT CLAUDICATION [None]
  - ATAXIA [None]
  - MOBILITY DECREASED [None]
  - APHASIA [None]
